FAERS Safety Report 15833104 (Version 1)
Quarter: 2018Q4

REPORT INFORMATION
  Report Type: Spontaneous
  Country: US (occurrence: US)
  Receive Date: 20181221
  Receipt Date: 20181221
  Transmission Date: 20190205
  Serious: Yes (Other)
  Sender: FDA-Public Use
  Company Number: None

PATIENT
  Age: 43 Year
  Sex: Female
  Weight: 75.6 kg

DRUGS (4)
  1. TRAZODONE [Concomitant]
     Active Substance: TRAZODONE HYDROCHLORIDE
  2. NORCO [Concomitant]
     Active Substance: ACETAMINOPHEN\HYDROCODONE BITARTRATE
  3. LUPRON DEPOT [Suspect]
     Active Substance: LEUPROLIDE ACETATE
     Indication: UTERINE LEIOMYOSARCOMA
     Dates: start: 20181005, end: 20181005
  4. VICODIN [Concomitant]
     Active Substance: ACETAMINOPHEN\HYDROCODONE BITARTRATE

REACTIONS (24)
  - Bone pain [None]
  - Migraine with aura [None]
  - Vulvovaginal dryness [None]
  - Vision blurred [None]
  - Hypertension [None]
  - Peripheral swelling [None]
  - Mood swings [None]
  - Vulvovaginal pain [None]
  - Insomnia [None]
  - Arrhythmia [None]
  - Alopecia [None]
  - Dizziness [None]
  - Memory impairment [None]
  - Feeling abnormal [None]
  - Depression [None]
  - Grip strength decreased [None]
  - Pain in extremity [None]
  - Suicidal ideation [None]
  - Toothache [None]
  - Vulvovaginal pruritus [None]
  - Cardiac disorder [None]
  - Influenza like illness [None]
  - Weight increased [None]
  - Hot flush [None]

NARRATIVE: CASE EVENT DATE: 20181005
